FAERS Safety Report 6202352-9 (Version None)
Quarter: 2009Q2

REPORT INFORMATION
  Report Type: 
  Country: None (occurrence: None)
  Receive Date: 20090521
  Receipt Date: 20090521
  Transmission Date: 20091009
  Serious: Yes (Other)
  Sender: FDA-Public Use
  Company Number: None

PATIENT
  Sex: Female

DRUGS (3)
  1. LEVAQUIN [Suspect]
     Indication: URINARY TRACT INFECTION
     Dosage: LESS THAN 5 MIN
     Route: 042
     Dates: start: 20090510
  2. LASIX [Concomitant]
  3. XOPENEX [Concomitant]

REACTIONS (2)
  - ERYTHEMA [None]
  - INFUSION SITE PRURITUS [None]
